FAERS Safety Report 15330755 (Version 1)
Quarter: 2018Q3

REPORT INFORMATION
  Report Type: Spontaneous
  Country: US (occurrence: US)
  Receive Date: 20180829
  Receipt Date: 20180829
  Transmission Date: 20181010
  Serious: No
  Sender: FDA-Public Use
  Company Number: US-NAPO PHARMACEUTICALS, INC.-2054424

PATIENT
  Sex: Male

DRUGS (1)
  1. FULYZAQ [Suspect]
     Active Substance: CROFELEMER
     Dates: start: 20180725

REACTIONS (1)
  - Psychomotor hyperactivity [Unknown]
